FAERS Safety Report 11827176 (Version 1)
Quarter: 2015Q4

REPORT INFORMATION
  Report Type: Report from Study
  Country: BR (occurrence: BR)
  Receive Date: 20151211
  Receipt Date: 20151211
  Transmission Date: 20160305
  Serious: Yes (Other)
  Sender: FDA-Public Use
  Company Number: PHHY2015BR054615

PATIENT
  Sex: Female
  Weight: 86 kg

DRUGS (3)
  1. SANDOSTATIN LAR DEPOT [Suspect]
     Active Substance: OCTREOTIDE ACETATE
     Dosage: 30 MG, EACH 28 DAYS
     Route: 065
  2. SANDOSTATIN LAR DEPOT [Suspect]
     Active Substance: OCTREOTIDE ACETATE
     Indication: NEUROENDOCRINE TUMOUR
     Dosage: 20 MG, EACH 28 DAYS
     Route: 065
     Dates: start: 2012
  3. SANDOSTATIN LAR DEPOT [Suspect]
     Active Substance: OCTREOTIDE ACETATE
     Dosage: 2 DF (20 MG), EVERY 28 DAYS
     Route: 030

REACTIONS (8)
  - Memory impairment [Recovering/Resolving]
  - Pelvic pain [Unknown]
  - Incorrect dose administered [Unknown]
  - Diarrhoea [Unknown]
  - Back pain [Unknown]
  - Pulmonary mass [Unknown]
  - Abdominal pain [Unknown]
  - Constipation [Unknown]
